FAERS Safety Report 8613327 (Version 2)
Quarter: 2014Q1

REPORT INFORMATION
  Report Type: Spontaneous
  Country: US (occurrence: None)
  Receive Date: 20120323
  Receipt Date: 20130305
  Transmission Date: 20141002
  Serious: Yes (Other)
  Sender: FDA-Public Use
  Company Number: 163-21880-11122736

PATIENT
  Age: 63 Year
  Sex: Male
  Weight: 91.63 kg

DRUGS (25)
  1. REVLIMID [Suspect]
     Indication: PLASMA CELL MYELOMA
     Dosage: 10 MG, DAILY X 28 DAYS, PO 5 MG, QOD, PO
     Route: 048
     Dates: start: 20111110
  2. AMMONIUN LAC (AMMONIUM LACTATE) [Concomitant]
  3. ARANESP [Concomitant]
  4. CARVEDILOL (CARVEDILOL) [Concomitant]
  5. CRESTOR [Concomitant]
  6. DECADRON [Concomitant]
  7. DOCUSATE (DOCUSATE) [Concomitant]
  8. FISH OIL [Concomitant]
  9. FLUOCINONIDE [Concomitant]
  10. FOLIC ACID [Concomitant]
  11. GEMFIBROZIL [Concomitant]
  12. VICODIN [Concomitant]
  13. LASX (FUROSEMIDE) [Concomitant]
  14. LIDODERM [Concomitant]
  15. MELATONIN (MELATONIN) [Concomitant]
  16. METOLAZONE [Concomitant]
  17. MIRALAX [Concomitant]
  18. MULTIVITAMINS WITH MINERALS (MULTIVITRAMINS WITH MINERALS) [Concomitant]
  19. PREDNISONE [Concomitant]
  20. RANITIDINE HYDROCHLORIDE [Concomitant]
  21. RENVELA [Concomitant]
  22. VALACYCLOVIR [Concomitant]
  23. VOLTAREN [Concomitant]
  24. ZETIA (EZETIMIBE) [Concomitant]
  25. VELCADE [Concomitant]

REACTIONS (2)
  - Blood creatinine increased [None]
  - Nasopharyngitis [None]
